FAERS Safety Report 4296027-3 (Version None)
Quarter: 2004Q1

REPORT INFORMATION
  Report Type: 
  Country: None (occurrence: None)
  Receive Date: 20040212
  Receipt Date: 20040129
  Transmission Date: 20041129
  Serious: Yes (Other)
  Sender: FDA-Public Use
  Company Number: 2004005988

PATIENT
  Age: 31 Year
  Sex: Male

DRUGS (1)
  1. DIPHENHYDRAMINE HCL [Suspect]
     Dosage: 750 MG QD, ORAL
     Route: 048

REACTIONS (4)
  - ANTICHOLINERGIC SYNDROME [None]
  - BLOOD PRESSURE SYSTOLIC INCREASED [None]
  - ROAD TRAFFIC ACCIDENT [None]
  - STARING [None]
